FAERS Safety Report 6436227-7 (Version None)
Quarter: 2009Q4

REPORT INFORMATION
  Report Type: 
  Country: None (occurrence: None)
  Receive Date: 20091111
  Receipt Date: 20091109
  Transmission Date: 20100525
  Serious: Yes (Death, Life-Threatening, Hospitalization, Congenital Anomaly)
  Sender: FDA-Public Use
  Company Number: A0631226A

PATIENT
  Sex: Female
  Weight: 1.1 kg

DRUGS (22)
  1. PAXIL [Suspect]
     Indication: DRUG USE FOR UNKNOWN INDICATION
     Dosage: 40MG PER DAY
  2. TRAZODONE HCL [Concomitant]
     Indication: SLEEP DISORDER
     Dosage: 50MG AS REQUIRED
     Dates: start: 20010301, end: 20030501
  3. CELEXA [Concomitant]
     Indication: DEPRESSION
     Dates: start: 20010101
  4. SONATA [Concomitant]
     Indication: SLEEP DISORDER
     Dates: start: 20010301, end: 20020101
  5. ALPRAZOLAM [Concomitant]
     Indication: ANXIETY
     Dosage: .5MG AS REQUIRED
     Dates: start: 20010301, end: 20030101
  6. IMITREX [Concomitant]
     Indication: MIGRAINE
     Dates: start: 20010301, end: 20020401
  7. MIGQUIN [Concomitant]
     Indication: DRUG USE FOR UNKNOWN INDICATION
     Dates: start: 20010901
  8. PHENERGAN HCL [Concomitant]
     Indication: NAUSEA
     Dates: start: 20011001
  9. DEPAKOTE [Concomitant]
     Dates: start: 20011101, end: 20020101
  10. DIAZEPAM [Concomitant]
     Dates: start: 20011101
  11. ALBUTEROL [Concomitant]
     Indication: ASTHMA
     Dates: start: 20020301, end: 20020801
  12. SKELAXIN [Concomitant]
     Dates: start: 20020301
  13. HYDROCODONE BITARTRATE AND ACETAMINOPHEN [Concomitant]
     Dates: start: 20020301
  14. VITAMIN TAB [Concomitant]
     Dates: start: 20020501, end: 20020801
  15. CEPHALEXIN [Concomitant]
     Indication: INFECTION
     Dates: start: 20020601
  16. PROPRANOLOL HCL [Concomitant]
     Indication: MIGRAINE
     Dates: start: 20020801
  17. DESERIL [Concomitant]
  18. MAGNESIUM SULFATE [Concomitant]
  19. DEXAMETHASONE [Concomitant]
  20. MORPHINE SULFATE [Concomitant]
     Dates: start: 20020410
  21. LORTAB [Concomitant]
  22. THORAZINE [Concomitant]

REACTIONS (41)
  - ANAEMIA [None]
  - AORTIC DISORDER [None]
  - AORTIC VALVE INCOMPETENCE [None]
  - APNOEA [None]
  - ATRIAL SEPTAL DEFECT [None]
  - BRADYCARDIA [None]
  - BRONCHIAL HYPERREACTIVITY [None]
  - CARDIAC FAILURE [None]
  - CARDIAC MURMUR [None]
  - CEREBRAL VENTRICLE DILATATION [None]
  - CNS VENTRICULITIS [None]
  - CONGENITAL HYPOTHYROIDISM [None]
  - CYANOSIS [None]
  - DRUG EXPOSURE DURING PREGNANCY [None]
  - FAILURE TO THRIVE [None]
  - FALLOT'S TETRALOGY [None]
  - FOETAL DISTRESS SYNDROME [None]
  - GASTROOESOPHAGEAL REFLUX DISEASE [None]
  - HEPATOMEGALY [None]
  - HYPERTROPHY [None]
  - HYPOTENSION [None]
  - HYPOXIA [None]
  - INTRAVENTRICULAR HAEMORRHAGE [None]
  - INTRAVENTRICULAR HAEMORRHAGE NEONATAL [None]
  - LIVER DISORDER [None]
  - MITRAL VALVE INCOMPETENCE [None]
  - OBSTRUCTIVE AIRWAYS DISORDER [None]
  - PATENT DUCTUS ARTERIOSUS [None]
  - PERSISTENT FOETAL CIRCULATION [None]
  - POST PROCEDURAL COMPLICATION [None]
  - PULMONARY ARTERY STENOSIS [None]
  - PULMONARY ARTERY STENOSIS CONGENITAL [None]
  - PULMONARY HYPERTENSION [None]
  - PULMONARY VALVE STENOSIS CONGENITAL [None]
  - RESPIRATORY DISORDER [None]
  - RESPIRATORY DISTRESS [None]
  - RIGHT VENTRICULAR DYSFUNCTION [None]
  - RIGHT VENTRICULAR HYPERTROPHY [None]
  - SEPSIS [None]
  - TRICUSPID VALVE INCOMPETENCE [None]
  - VENTRICULAR SEPTAL DEFECT [None]
